FAERS Safety Report 24596782 (Version 4)
Quarter: 2025Q1

REPORT INFORMATION
  Report Type: Spontaneous
  Country: US (occurrence: US)
  Receive Date: 20241110
  Receipt Date: 20250320
  Transmission Date: 20250409
  Serious: Yes (Other)
  Sender: SANOFI AVENTIS
  Company Number: US-SA-2024SA309748

PATIENT
  Age: 39 Year
  Sex: Female

DRUGS (24)
  1. DUPIXENT [Suspect]
     Active Substance: DUPILUMAB
     Indication: Eosinophilic oesophagitis
     Dosage: 300 MG, QW
     Route: 058
     Dates: start: 20231222
  2. ADDERALL [Concomitant]
     Active Substance: AMPHETAMINE ASPARTATE\AMPHETAMINE SULFATE\DEXTROAMPHETAMINE SACCHARATE\DEXTROAMPHETAMINE SULFATE
  3. BUDESONIDE [Concomitant]
     Active Substance: BUDESONIDE
  4. CITALOPRAM [Concomitant]
     Active Substance: CITALOPRAM
  5. FLONASE ALLERGY RELIEF [Concomitant]
     Active Substance: FLUTICASONE PROPIONATE
  6. GABAPENTIN [Concomitant]
     Active Substance: GABAPENTIN
  7. KEPPRA [Concomitant]
     Active Substance: LEVETIRACETAM
  8. LAMOTRIGINE [Concomitant]
     Active Substance: LAMOTRIGINE
  9. LORAZEPAM [Concomitant]
     Active Substance: LORAZEPAM
  10. NAYZILAM [Concomitant]
     Active Substance: MIDAZOLAM
  11. NYSTATIN [Concomitant]
     Active Substance: NYSTATIN
  12. OMEPRAZOLE [Concomitant]
     Active Substance: OMEPRAZOLE
  13. RIZATRIPTAN [RIZATRIPTAN BENZOATE] [Concomitant]
  14. ZONISAMIDE [Concomitant]
     Active Substance: ZONISAMIDE
  15. ABILIFY [Concomitant]
     Active Substance: ARIPIPRAZOLE
  16. VITAMIN D NOS [Concomitant]
     Active Substance: CHOLECALCIFEROL\ERGOCALCIFEROL
  17. UBRELVY [Concomitant]
     Active Substance: UBROGEPANT
  18. LAMOTRIGINE [Concomitant]
     Active Substance: LAMOTRIGINE
  19. EPIPEN [Concomitant]
     Active Substance: EPINEPHRINE
  20. LAMOTRIGINE [Concomitant]
     Active Substance: LAMOTRIGINE
  21. Allergy Relief [Concomitant]
  22. GABAPENTIN [Concomitant]
     Active Substance: GABAPENTIN
  23. LAMOTRIGINE [Concomitant]
     Active Substance: LAMOTRIGINE
  24. SEROQUEL [Concomitant]
     Active Substance: QUETIAPINE FUMARATE

REACTIONS (6)
  - Nephrolithiasis [Unknown]
  - Dysphagia [Unknown]
  - Upper respiratory tract infection [Not Recovered/Not Resolved]
  - Injection site reaction [Not Recovered/Not Resolved]
  - Drug ineffective [Unknown]
  - Product dose omission in error [Unknown]

NARRATIVE: CASE EVENT DATE: 20240901
